FAERS Safety Report 4322051-8 (Version None)
Quarter: 2004Q1

REPORT INFORMATION
  Report Type: 
  Country: None (occurrence: None)
  Receive Date: 20040319
  Receipt Date: 20040308
  Transmission Date: 20041129
  Serious: Yes (Hospitalization, Other)
  Sender: FDA-Public Use
  Company Number: 200403356

PATIENT
  Age: 53 Year
  Sex: Male

DRUGS (4)
  1. IBUPROFEN [Suspect]
     Indication: EAR INFECTION
     Dosage: EVERY FEW DAYS
     Dates: start: 19900101
  2. TEGRETOL [Suspect]
     Indication: CONVULSION
  3. DILANTIN [Concomitant]
  4. NEURONTIN [Concomitant]

REACTIONS (8)
  - CERUMEN IMPACTION [None]
  - CONDITION AGGRAVATED [None]
  - DRUG LEVEL INCREASED [None]
  - EAR INFECTION [None]
  - GASTROINTESTINAL ULCER HAEMORRHAGE [None]
  - GRAND MAL CONVULSION [None]
  - INFECTION [None]
  - WEIGHT DECREASED [None]
